FAERS Safety Report 11458529 (Version 1)
Quarter: 2015Q3

REPORT INFORMATION
  Report Type: Spontaneous
  Country: US (occurrence: None)
  Receive Date: 20150903
  Receipt Date: 20150903
  Transmission Date: 20151125
  Serious: No
  Sender: FDA-Public Use
  Company Number: None

PATIENT
  Age: 39 Year
  Sex: Female
  Weight: 65.77 kg

DRUGS (3)
  1. NEUTROGENA BODY CLEAR BODY WASH PINK GRAPEFRUIT [Suspect]
     Active Substance: SALICYLIC ACID
     Indication: ACNE
     Dosage: APPLIED TO A SURFACE, USUALLY THE SKIN
  2. IBUPROFEN. [Concomitant]
     Active Substance: IBUPROFEN
  3. ACETAMINOPHEN. [Concomitant]
     Active Substance: ACETAMINOPHEN

REACTIONS (8)
  - Swelling face [None]
  - Skin burning sensation [None]
  - Dry skin [None]
  - Erythema [None]
  - Pain [None]
  - Eye swelling [None]
  - Chemical injury [None]
  - Discomfort [None]

NARRATIVE: CASE EVENT DATE: 20150206
